FAERS Safety Report 5309699-9 (Version None)
Quarter: 2007Q2

REPORT INFORMATION
  Report Type: 
  Country: None (occurrence: None)
  Receive Date: 20070427
  Receipt Date: 20070416
  Transmission Date: 20071010
  Serious: Yes (Hospitalization)
  Sender: FDA-Public Use
  Company Number: JP-ROCHE-488127

PATIENT
  Age: 58 Year
  Sex: Male

DRUGS (5)
  1. TAMIFLU [Suspect]
     Route: 048
     Dates: start: 20070312, end: 20070312
  2. MYSLEE [Suspect]
     Route: 048
  3. POTACOL-R [Concomitant]
     Route: 042
     Dates: start: 20070312, end: 20070312
  4. CALONAL [Concomitant]
     Dosage: DOSE: 6 TABLETS/DAY.
     Route: 048
     Dates: start: 20070312
  5. 1 CONCOMITANT DRUG [Concomitant]
     Dosage: ANTIDIABETIC AGENT.
     Route: 048

REACTIONS (4)
  - ABNORMAL BEHAVIOUR [None]
  - ASTHENIA [None]
  - DELIRIUM [None]
  - HALLUCINATION [None]
